FAERS Safety Report 9074971 (Version 2)
Quarter: 2013Q2

REPORT INFORMATION
  Report Type: Report from Study
  Country: US (occurrence: US)
  Receive Date: 20130129
  Receipt Date: 20130515
  Transmission Date: 20140414
  Serious: Yes (Hospitalization)
  Sender: FDA-Public Use
  Company Number: US-ACTELION-A-US2013-78059

PATIENT
  Age: 67 Year
  Sex: Male

DRUGS (1)
  1. VELETRI [Suspect]
     Indication: PULMONARY ARTERIAL HYPERTENSION
     Dosage: 23.1 NG/KG, PER MIN
     Route: 042
     Dates: start: 20100811

REACTIONS (2)
  - Gastrointestinal oedema [Recovering/Resolving]
  - Abdominal pain upper [Recovering/Resolving]
